FAERS Safety Report 18874019 (Version 1)
Quarter: 2021Q1

REPORT INFORMATION
  Report Type: Spontaneous
  Country: US (occurrence: US)
  Receive Date: 20210210
  Receipt Date: 20210210
  Transmission Date: 20210420
  Serious: No
  Sender: FDA-Public Use
  Company Number: US-BAYER-2021-030847

PATIENT

DRUGS (1)
  1. GADAVIST [Suspect]
     Active Substance: GADOBUTROL
     Indication: IMAGING PROCEDURE
     Dosage: UNK UNK, ONCE
     Route: 042
     Dates: start: 20210106, end: 20210106

REACTIONS (2)
  - Drug eruption [None]
  - Urticaria [None]

NARRATIVE: CASE EVENT DATE: 20210106
